FAERS Safety Report 12827151 (Version 1)
Quarter: 2016Q4

REPORT INFORMATION
  Report Type: Spontaneous
  Country: US (occurrence: US)
  Receive Date: 20161006
  Receipt Date: 20161006
  Transmission Date: 20170207
  Serious: No
  Sender: FDA-Public Use
  Company Number: US-INDIVIOR LIMITED-INDV-089159-2016

PATIENT
  Age: 56 Year
  Sex: Female

DRUGS (9)
  1. SUBOXONE [Suspect]
     Active Substance: BUPRENORPHINE HYDROCHLORIDE\NALOXONE HYDROCHLORIDE
     Dosage: 8 MG, TID
     Route: 060
     Dates: start: 20160228, end: 20160228
  2. VALIUM [Concomitant]
     Active Substance: DIAZEPAM
     Indication: ANXIETY
     Dosage: 5MG, THREE TIMES A DAY
     Route: 048
     Dates: start: 2013
  3. SUBOXONE [Suspect]
     Active Substance: BUPRENORPHINE HYDROCHLORIDE\NALOXONE HYDROCHLORIDE
     Dosage: 8 MG, BID
     Route: 060
     Dates: start: 20160227, end: 20160227
  4. SUBOXONE [Suspect]
     Active Substance: BUPRENORPHINE HYDROCHLORIDE\NALOXONE HYDROCHLORIDE
     Dosage: 8 MG, QID
     Route: 060
     Dates: start: 20160229, end: 20160306
  5. SUBOXONE [Suspect]
     Active Substance: BUPRENORPHINE HYDROCHLORIDE\NALOXONE HYDROCHLORIDE
     Dosage: UNKNOWN, VARIOUS TAPERED DOSES
     Route: 060
     Dates: start: 20160309, end: 20160311
  6. PERCOCET                           /00446701/ [Suspect]
     Active Substance: ACETAMINOPHEN\OXYCODONE HYDROCHLORIDE\OXYCODONE TEREPHTHALATE
     Indication: PAIN
     Dosage: 10MG, TWICE A DAY FOR 30 DAYS
     Route: 065
     Dates: start: 20160316
  7. SUBOXONE [Suspect]
     Active Substance: BUPRENORPHINE HYDROCHLORIDE\NALOXONE HYDROCHLORIDE
     Indication: PAIN
     Dosage: UNK, TID
     Route: 060
     Dates: start: 20160226, end: 20160226
  8. SUBOXONE [Suspect]
     Active Substance: BUPRENORPHINE HYDROCHLORIDE\NALOXONE HYDROCHLORIDE
     Dosage: 8MG, DAILY
     Route: 060
     Dates: start: 20160307, end: 20160308
  9. SONATA                             /00061001/ [Concomitant]
     Indication: INSOMNIA
     Dosage: 20MG, DAILY
     Route: 048
     Dates: start: 2013

REACTIONS (18)
  - Product preparation error [Recovered/Resolved]
  - Paranoia [Recovered/Resolved]
  - Insomnia [Recovered/Resolved]
  - Crying [Recovered/Resolved]
  - Contraindicated product administered [Unknown]
  - Tremor [Recovered/Resolved]
  - Off label use [Recovered/Resolved]
  - Cognitive disorder [Recovered/Resolved]
  - Drug withdrawal syndrome [Recovered/Resolved]
  - Anxiety [Not Recovered/Not Resolved]
  - Intentional underdose [Recovered/Resolved]
  - Speech disorder [Recovered/Resolved]
  - Impaired driving ability [Recovered/Resolved]
  - Drug ineffective for unapproved indication [Recovered/Resolved]
  - Feeling abnormal [Recovered/Resolved]
  - Formication [Recovered/Resolved]
  - Intentional product misuse [Recovered/Resolved]
  - Therapeutic product ineffective [Unknown]

NARRATIVE: CASE EVENT DATE: 20160226
